FAERS Safety Report 11748561 (Version 4)
Quarter: 2016Q1

REPORT INFORMATION
  Report Type: Report from Study
  Country: DE (occurrence: DE)
  Receive Date: 20151117
  Receipt Date: 20160229
  Transmission Date: 20160525
  Serious: Yes (Other)
  Sender: FDA-Public Use
  Company Number: DE-UCBSA-2015036229

PATIENT
  Sex: Female
  Weight: 60 kg

DRUGS (8)
  1. MTX [Concomitant]
     Active Substance: METHOTREXATE SODIUM
     Indication: RHEUMATOID ARTHRITIS
     Dosage: 15 MG, WEEKLY (QW)
     Route: 048
     Dates: start: 20150702
  2. CERTOLIZUMAB PEGOL RA [Suspect]
     Active Substance: CERTOLIZUMAB PEGOL
     Indication: RHEUMATOID ARTHRITIS
     Dosage: 200 MG, EV 2 WEEKS(QOW)
     Route: 058
     Dates: start: 20150702, end: 20151029
  3. FOLIC ACID. [Concomitant]
     Active Substance: FOLIC ACID
     Indication: RHEUMATOID ARTHRITIS
     Dosage: 5 MG, WEEKLY (QW)
     Route: 048
     Dates: start: 20150702
  4. PREDNISOLON [Concomitant]
     Active Substance: PREDNISOLONE
     Indication: RHEUMATOID ARTHRITIS
     Dosage: 5 MG, ONCE DAILY (QD)
     Route: 048
     Dates: start: 2012
  5. PREDNISOLON [Concomitant]
     Active Substance: PREDNISOLONE
     Dosage: 2.5 MG, ONCE DAILY (QD)
     Route: 048
     Dates: start: 20151010
  6. ATORVASTATINE [Concomitant]
     Active Substance: ATORVASTATIN
     Indication: LIPID METABOLISM DISORDER
     Dosage: 40 MG, 2X/DAY (BID)
     Route: 048
     Dates: start: 201504
  7. L-THYROXINE [Concomitant]
     Active Substance: LEVOTHYROXINE
     Indication: UNEVALUABLE EVENT
     Dosage: 125 MG, ONCE DAILY (QD)
     Route: 048
     Dates: start: 2010
  8. BISOPROLOL [Concomitant]
     Active Substance: BISOPROLOL
     Indication: HYPERTENSION
     Dosage: 5 MG, ONCE DAILY (QD)
     Dates: start: 2012

REACTIONS (1)
  - Psoriasis [Not Recovered/Not Resolved]

NARRATIVE: CASE EVENT DATE: 20151015
